FAERS Safety Report 6031853-1 (Version None)
Quarter: 2009Q1

REPORT INFORMATION
  Report Type: 
  Country: None (occurrence: None)
  Receive Date: 20090108
  Receipt Date: 20081230
  Transmission Date: 20090719
  Serious: Yes (Other)
  Sender: FDA-Public Use
  Company Number: US-PFIZER INC-2008095825

PATIENT
  Sex: Female
  Weight: 61.224 kg

DRUGS (8)
  1. LYRICA [Suspect]
     Indication: PAIN IN EXTREMITY
     Dates: start: 20080101
  2. LEVOXYL [Concomitant]
     Route: 048
  3. ADVAIR DISKUS 100/50 [Concomitant]
     Dosage: UNK
  4. CYTOMEL [Concomitant]
     Dosage: 10 UNK, UNK
  5. CALCIUM [Concomitant]
     Dosage: 500 MG, 2X/DAY
  6. FISH OIL [Concomitant]
     Dosage: UNK
  7. ACETYLSALICYLIC ACID [Concomitant]
     Dosage: 81 MG, UNK
  8. VICODIN [Concomitant]

REACTIONS (1)
  - ONYCHOMYCOSIS [None]
